FAERS Safety Report 5694129-8 (Version None)
Quarter: 2008Q2

REPORT INFORMATION
  Report Type: 
  Country: None (occurrence: None)
  Receive Date: 20080403
  Receipt Date: 20080326
  Transmission Date: 20081010
  Serious: Yes (Hospitalization)
  Sender: FDA-Public Use
  Company Number: US-ABBOTT-08P-163-0437952-00

PATIENT
  Sex: Female
  Weight: 111.6 kg

DRUGS (8)
  1. E.E.S. 400 [Suspect]
     Indication: PNEUMONIA
     Route: 048
     Dates: start: 20040101, end: 20040101
  2. E.E.S. 400 [Suspect]
     Indication: BRONCHITIS
  3. TYLOX [Concomitant]
     Indication: BACK PAIN
     Route: 048
     Dates: start: 20030101
  4. TYLOX [Concomitant]
     Indication: ARTHRALGIA
  5. TYLOX [Concomitant]
  6. ESOMEPRAZOLE MAGNESIUM [Concomitant]
     Indication: ULCER
     Route: 048
     Dates: start: 20050101
  7. PROMETHAZINE [Concomitant]
     Indication: NAUSEA
     Route: 048
  8. PROMETHAZINE [Concomitant]
     Indication: MIGRAINE

REACTIONS (2)
  - DYSPNOEA [None]
  - RASH MACULAR [None]
